FAERS Safety Report 13585593 (Version 1)
Quarter: 2017Q2

REPORT INFORMATION
  Report Type: Report from Study
  Country: US (occurrence: US)
  Receive Date: 20170526
  Receipt Date: 20170526
  Transmission Date: 20170830
  Serious: Yes (Other)
  Sender: FDA-Public Use
  Company Number: US-TESARO, INC.-US-2017TSO00246

PATIENT

DRUGS (3)
  1. ZEJULA [Suspect]
     Active Substance: NIRAPARIB
     Indication: OVARIAN CANCER
     Dosage: 300 MG, QD
     Route: 048
     Dates: start: 20170509
  2. VARUBI [Suspect]
     Active Substance: ROLAPITANT
     Indication: OVARIAN CANCER
     Dosage: 90 MG, UNK
  3. VARUBI [Suspect]
     Active Substance: ROLAPITANT
     Dosage: 180 MG, UNK

REACTIONS (1)
  - Dehydration [Recovered/Resolved]

NARRATIVE: CASE EVENT DATE: 20170516
